FAERS Safety Report 19985170 (Version 3)
Quarter: 2022Q2

REPORT INFORMATION
  Report Type: Report from Study
  Country: KR (occurrence: None)
  Receive Date: 20211022
  Receipt Date: 20220506
  Transmission Date: 20220720
  Serious: Yes (Hospitalization)
  Sender: FDA-Public Use
  Company Number: KR-EISAI MEDICAL RESEARCH-EC-2021-101622

PATIENT
  Age: 68 Year
  Sex: Female
  Weight: 59.3 kg

DRUGS (30)
  1. LENVIMA [Suspect]
     Active Substance: LENVATINIB
     Indication: Uterine cancer
     Route: 048
     Dates: start: 20210811, end: 20211104
  2. PEMBROLIZUMAB [Suspect]
     Active Substance: PEMBROLIZUMAB
     Indication: Uterine cancer
     Route: 042
     Dates: start: 20210811, end: 20210927
  3. MICATERE PLUS [Concomitant]
     Indication: Hypertension
     Dosage: 80/12.5 MG
     Route: 048
     Dates: start: 20200316
  4. HYUNDAI TENORMIN [Concomitant]
     Indication: Hypertension
     Route: 048
     Dates: start: 20210910
  5. ALMAGEL F [Concomitant]
     Indication: Chronic gastritis
     Dosage: 4 PACK
     Route: 048
     Dates: start: 20210401
  6. PIRENOXINE [Concomitant]
     Active Substance: PIRENOXINE
     Indication: Retinal disorder
     Route: 031
     Dates: start: 20210525
  7. DIMETHICONE\PANCRELIPASE\URSODIOL [Concomitant]
     Active Substance: DIMETHICONE\PANCRELIPASE\URSODIOL
     Route: 048
     Dates: start: 20210602, end: 20211101
  8. MAGMIL S [Concomitant]
     Indication: Chronic gastritis
     Route: 048
     Dates: start: 20210621
  9. KYONGBO CEFTRIAXONE SODIUM [Concomitant]
     Indication: Prophylaxis
     Dosage: 1 VIAL - 2G
     Route: 042
     Dates: start: 20210812, end: 20210816
  10. HYABAK EYE DROPS [Concomitant]
     Indication: Prophylaxis
     Route: 031
     Dates: start: 20210525
  11. AMINO ACIDS\DEXTROSE\ELECTROLYTES NOS\SOYBEAN OIL\VITAMINS [Concomitant]
     Active Substance: AMINO ACIDS\DEXTROSE\ELECTROLYTES NOS\SOYBEAN OIL\VITAMINS
     Indication: Decreased appetite
     Dosage: 1 BAG
     Route: 042
     Dates: start: 20210804, end: 20210813
  12. AMINO ACIDS\DEXTROSE\ELECTROLYTES NOS\SOYBEAN OIL\VITAMINS [Concomitant]
     Active Substance: AMINO ACIDS\DEXTROSE\ELECTROLYTES NOS\SOYBEAN OIL\VITAMINS
     Dosage: 1 BAG
     Route: 042
     Dates: start: 20210817, end: 20210817
  13. AMINO ACIDS\DEXTROSE\ELECTROLYTES NOS\SOYBEAN OIL\VITAMINS [Concomitant]
     Active Substance: AMINO ACIDS\DEXTROSE\ELECTROLYTES NOS\SOYBEAN OIL\VITAMINS
     Dosage: 1 BAG
     Route: 042
     Dates: start: 20210831, end: 20210904
  14. AMINO ACIDS\DEXTROSE\ELECTROLYTES NOS\SOYBEAN OIL\VITAMINS [Concomitant]
     Active Substance: AMINO ACIDS\DEXTROSE\ELECTROLYTES NOS\SOYBEAN OIL\VITAMINS
     Dosage: 1 BAG
     Route: 042
     Dates: start: 20210923
  15. TIROPRAMIDE [Concomitant]
     Active Substance: TIROPRAMIDE
     Indication: Decreased appetite
     Route: 048
     Dates: start: 20210804
  16. TRESTAN [Concomitant]
     Indication: Decreased appetite
     Route: 048
     Dates: start: 20210715
  17. PROPACETAMOL HYDROCHLORIDE [Concomitant]
     Active Substance: PROPACETAMOL HYDROCHLORIDE
     Indication: Pain
     Dosage: 1 VIAL
     Route: 042
     Dates: start: 20210805
  18. KETORAC [Concomitant]
     Indication: Pain
     Dosage: 1 AMPULE
     Route: 042
     Dates: start: 20210813
  19. NUCYNTA ER [Concomitant]
     Active Substance: TAPENTADOL HYDROCHLORIDE
     Indication: Pain
     Route: 048
     Dates: start: 20210813
  20. FENTANYL [Concomitant]
     Active Substance: FENTANYL
     Indication: Pain
     Dosage: 12MCG/H 5.25 ?
     Route: 062
     Dates: start: 20210813, end: 20210905
  21. BEECOM-HEXA [Concomitant]
     Indication: Decreased appetite
     Dosage: 1 AMPULE
     Route: 042
     Dates: start: 20210905, end: 20210905
  22. ASCORBIC ACID DAIHAN [Concomitant]
     Indication: Decreased appetite
     Dosage: 1 AMPULE - 100MG/2ML
     Route: 042
     Dates: start: 20210905, end: 20210905
  23. IBUPROFEN [Concomitant]
     Active Substance: IBUPROFEN
     Indication: Productive cough
     Route: 048
     Dates: start: 20210902, end: 20210923
  24. AUGMEX [Concomitant]
     Indication: Productive cough
     Route: 048
     Dates: start: 20210902, end: 20210909
  25. BENZYDAMINE HYDROCHLORIDE [Concomitant]
     Active Substance: BENZYDAMINE HYDROCHLORIDE
     Indication: Productive cough
     Route: 048
     Dates: start: 20210902
  26. PROAMIN [Concomitant]
     Indication: Decreased appetite
     Dosage: 1 BOTTLE
     Route: 042
     Dates: start: 20210905, end: 20210905
  27. METOCLOPRAMIDE HYDROCHLORIDE [Concomitant]
     Active Substance: METOCLOPRAMIDE HYDROCHLORIDE
     Indication: Nausea
     Dosage: 1 AMPULE
     Route: 042
     Dates: start: 20210905
  28. METOCLOPRAMIDE HYDROCHLORIDE [Concomitant]
     Active Substance: METOCLOPRAMIDE HYDROCHLORIDE
     Route: 048
     Dates: start: 20210906, end: 20211101
  29. NEXILEN S [Concomitant]
     Indication: Nausea
     Route: 048
     Dates: start: 20210906, end: 20211101
  30. TRAMADOL HYDROCHLORIDE [Concomitant]
     Active Substance: TRAMADOL HYDROCHLORIDE
     Indication: Pain
     Dosage: 1 AMPULE - 50MG/ML
     Route: 042
     Dates: start: 20210806

REACTIONS (1)
  - Urinary tract infection [Recovered/Resolved]

NARRATIVE: CASE EVENT DATE: 20210917
